FAERS Safety Report 7991273-7 (Version None)
Quarter: 2011Q4

REPORT INFORMATION
  Report Type: 
  Country: None (occurrence: None)
  Receive Date: 20111219
  Receipt Date: 20111212
  Transmission Date: 20120403
  Serious: Yes (Hospitalization)
  Sender: FDA-Public Use
  Company Number: JP-MERCK-1112USA00524

PATIENT
  Age: 33 Year
  Sex: Female

DRUGS (4)
  1. CYCLOPHOSPHAMIDE [Suspect]
     Indication: B-CELL TYPE ACUTE LEUKAEMIA
     Route: 065
  2. DECADRON [Suspect]
     Indication: B-CELL TYPE ACUTE LEUKAEMIA
     Route: 048
  3. DOXORUBICIN HCL [Suspect]
     Indication: B-CELL TYPE ACUTE LEUKAEMIA
     Route: 042
  4. VINCRISTINE SULFATE [Suspect]
     Indication: B-CELL TYPE ACUTE LEUKAEMIA
     Route: 042

REACTIONS (1)
  - PSEUDOMONAS INFECTION [None]
